FAERS Safety Report 10925938 (Version 1)
Quarter: 2015Q1

REPORT INFORMATION
  Report Type: Spontaneous
  Country: US (occurrence: US)
  Receive Date: 20150318
  Receipt Date: 20150318
  Transmission Date: 20150721
  Serious: No
  Sender: FDA-Public Use
  Company Number: US-GLAXOSMITHKLINE-US2015GSK029433

PATIENT
  Sex: Female

DRUGS (3)
  1. FLONASE [Suspect]
     Active Substance: FLUTICASONE PROPIONATE
     Indication: SINUSITIS
     Route: 045
     Dates: start: 201402, end: 201402
  2. LORATADINE. [Concomitant]
     Active Substance: LORATADINE
  3. ASPIRIN (BABY) [Concomitant]

REACTIONS (1)
  - Oropharyngeal pain [Recovered/Resolved]
